FAERS Safety Report 14596318 (Version 1)
Quarter: 2018Q1

REPORT INFORMATION
  Report Type: Spontaneous
  Country: DE (occurrence: DE)
  Receive Date: 20180303
  Receipt Date: 20180303
  Transmission Date: 20180509
  Serious: Yes (Hospitalization)
  Sender: FDA-Public Use
  Company Number: DE-AUROBINDO-AUR-APL-2018-011168

PATIENT

DRUGS (12)
  1. ZYPREXA [Suspect]
     Active Substance: OLANZAPINE
     Dosage: 575 UNK
     Dates: start: 20070101
  2. ZYPREXA [Suspect]
     Active Substance: OLANZAPINE
     Dosage: 15 MILLIGRAM, ONCE A DAY
     Dates: start: 20130805, end: 20130805
  3. ZYPREXA [Suspect]
     Active Substance: OLANZAPINE
     Dosage: 360 MILLIGRAM
  4. ZYPREXA [Suspect]
     Active Substance: OLANZAPINE
     Dosage: 5 MILLIGRAM, DAILY
     Route: 048
     Dates: start: 20130808, end: 20130809
  5. PROTHIPENDYL [Concomitant]
     Active Substance: PROTHIPENDYL
     Dosage: 80 MILLIGRAM, ONCE A DAY
  6. OLANZAPINE. [Suspect]
     Active Substance: OLANZAPINE
     Dosage: 25 MILLIGRAM
     Route: 048
     Dates: start: 20130723
  7. ZYPREXA [Suspect]
     Active Substance: OLANZAPINE
     Dosage: 25 MILLIGRAM
     Route: 048
     Dates: start: 20130724, end: 20130801
  8. LEVOTHYROXINE. [Concomitant]
     Active Substance: LEVOTHYROXINE
  9. OLANZAPINE. [Suspect]
     Active Substance: OLANZAPINE
     Indication: PARANOIA
     Dosage: UNK
     Route: 048
  10. OLANZAPINE. [Suspect]
     Active Substance: OLANZAPINE
     Dosage: 20 MILLIGRAM, DAILY
  11. ZYPREXA [Suspect]
     Active Substance: OLANZAPINE
     Dosage: 20 MILLIGRAM
     Route: 048
     Dates: start: 20130717, end: 20130717
  12. ZYPREXA [Suspect]
     Active Substance: OLANZAPINE
     Dosage: 10 MILLIGRAM, ONCE A DAY
     Route: 048
     Dates: start: 20130806, end: 20130807

REACTIONS (12)
  - Sleep disorder [Recovered/Resolved]
  - Insomnia [Unknown]
  - Amnesia [Unknown]
  - Supraventricular extrasystoles [Unknown]
  - Disorientation [Recovered/Resolved]
  - Confusional state [Not Recovered/Not Resolved]
  - Somnambulism [Recovered/Resolved]
  - Prescribed overdose [Unknown]
  - Somnambulism [Recovered/Resolved]
  - Bipolar disorder [Unknown]
  - Restlessness [Not Recovered/Not Resolved]
  - Hyperhidrosis [Unknown]

NARRATIVE: CASE EVENT DATE: 20130724
